FAERS Safety Report 14024180 (Version 1)
Quarter: 2017Q3

REPORT INFORMATION
  Report Type: Spontaneous
  Country: FR (occurrence: FR)
  Receive Date: 20170929
  Receipt Date: 20170929
  Transmission Date: 20171128
  Serious: Yes (Hospitalization)
  Sender: FDA-Public Use
  Company Number: FR-JNJFOC-20170922916

PATIENT
  Age: 76 Year
  Sex: Male

DRUGS (14)
  1. ACTISKENAN [Suspect]
     Active Substance: MORPHINE SULFATE
     Indication: PRODUCT USED FOR UNKNOWN INDICATION
     Route: 065
  2. XATRAL [Concomitant]
     Active Substance: ALFUZOSIN
     Route: 065
  3. FAMOTIDINE. [Concomitant]
     Active Substance: FAMOTIDINE
     Route: 065
  4. BETAXOL [Concomitant]
     Route: 065
  5. EZETROL [Concomitant]
     Active Substance: EZETIMIBE
     Route: 065
  6. TAHOR [Concomitant]
     Active Substance: ATORVASTATIN CALCIUM
     Route: 065
  7. MACROGOL [Concomitant]
     Active Substance: POLYETHYLENE GLYCOLS
     Route: 065
  8. DUROGESIC [Suspect]
     Active Substance: FENTANYL
     Indication: BACK PAIN
     Route: 065
     Dates: start: 2014, end: 20170601
  9. DAFALGAN [Concomitant]
     Active Substance: ACETAMINOPHEN
     Route: 065
  10. SYMBICORT [Concomitant]
     Active Substance: BUDESONIDE\FORMOTEROL FUMARATE DIHYDRATE
     Route: 065
  11. BACTRIM [Concomitant]
     Active Substance: SULFAMETHOXAZOLE\TRIMETHOPRIM
     Route: 065
  12. VALACICLOVIR [Concomitant]
     Active Substance: VALACYCLOVIR HYDROCHLORIDE
     Route: 065
  13. DUVELISIB [Concomitant]
     Active Substance: DUVELISIB
     Route: 065
  14. PLAVIX [Concomitant]
     Active Substance: CLOPIDOGREL BISULFATE
     Route: 065

REACTIONS (4)
  - Somnolence [Unknown]
  - Withdrawal syndrome [Recovered/Resolved]
  - Constipation [Unknown]
  - Attention deficit/hyperactivity disorder [Unknown]

NARRATIVE: CASE EVENT DATE: 20170601
